FAERS Safety Report 16684282 (Version 1)
Quarter: 2019Q3

REPORT INFORMATION
  Report Type: Spontaneous
  Country: PT (occurrence: PT)
  Receive Date: 20190808
  Receipt Date: 20190808
  Transmission Date: 20191004
  Serious: Yes (Hospitalization, Other)
  Sender: FDA-Public Use
  Company Number: PT-GLAXOSMITHKLINE-PT2019GSK143246

PATIENT

DRUGS (3)
  1. PROPAFENONE. [Suspect]
     Active Substance: PROPAFENONE
     Indication: PRODUCT USED FOR UNKNOWN INDICATION
     Dosage: 6 G OF PROPAFENONE
     Route: 048
  2. ATROPINE. [Suspect]
     Active Substance: ATROPINE
     Indication: CARDIO-RESPIRATORY ARREST
     Dosage: UNK
  3. IBUPROFEN. [Interacting]
     Active Substance: IBUPROFEN
     Indication: PRODUCT USED FOR UNKNOWN INDICATION
     Dosage: 1.5 G OF IBUPROFEN
     Route: 048

REACTIONS (19)
  - Cardio-respiratory arrest [Recovered/Resolved]
  - Shock [Recovered/Resolved]
  - pH body fluid abnormal [Recovered/Resolved]
  - Diastolic dysfunction [Recovered/Resolved]
  - Alanine aminotransferase increased [Recovered/Resolved]
  - Toxicity to various agents [Recovered/Resolved]
  - Cardiac arrest [Recovered/Resolved]
  - Generalised tonic-clonic seizure [Recovered/Resolved]
  - Metabolic acidosis [Recovered/Resolved]
  - Poor peripheral circulation [Recovered/Resolved]
  - Partial seizures [Recovered/Resolved]
  - Cardiovascular disorder [Recovered/Resolved]
  - Systolic dysfunction [Recovered/Resolved]
  - Therapy non-responder [Unknown]
  - Bradycardia [Recovered/Resolved]
  - Myocardial ischaemia [Recovered/Resolved]
  - Drug interaction [Unknown]
  - Intentional overdose [Unknown]
  - Acute kidney injury [Recovered/Resolved]
